FAERS Safety Report 6336070-3 (Version None)
Quarter: 2009Q3

REPORT INFORMATION
  Report Type: 
  Country: None (occurrence: None)
  Receive Date: 20090831
  Receipt Date: 20090831
  Transmission Date: 20100115
  Serious: Yes (Hospitalization)
  Sender: FDA-Public Use
  Company Number: None

PATIENT
  Age: 82 Year
  Sex: Female
  Weight: 86.637 kg

DRUGS (1)
  1. ERLOTINIB [Suspect]
     Indication: NON-SMALL CELL LUNG CANCER
     Dosage: 100 MG QD PO
     Route: 048
     Dates: start: 20070723, end: 20090825

REACTIONS (3)
  - DIZZINESS [None]
  - FALL [None]
  - RENAL FAILURE ACUTE [None]
